FAERS Safety Report 15988861 (Version 2)
Quarter: 2020Q1

REPORT INFORMATION
  Report Type: Other
  Country: SE (occurrence: SE)
  Receive Date: 20190221
  Receipt Date: 20200207
  Transmission Date: 20200409
  Serious: Yes (Hospitalization)
  Sender: FDA-Public Use
  Company Number: SE-CELLTRION INC.-2019SE018691

PATIENT

DRUGS (20)
  1. INFLIXIMAB (UNKNOWN) [Suspect]
     Active Substance: INFLIXIMAB
     Dosage: 400 MG, Q4WEEKS
     Route: 042
     Dates: start: 20181116, end: 20181116
  2. MINIRIN [Concomitant]
     Active Substance: DESMOPRESSIN ACETATE
     Dosage: UNK
  3. INFLIXIMAB (UNKNOWN) [Suspect]
     Active Substance: INFLIXIMAB
     Dosage: UNK
     Route: 042
     Dates: start: 20181115
  4. INFLIXIMAB (UNKNOWN) [Suspect]
     Active Substance: INFLIXIMAB
     Dosage: 400 MG, Q4WEEKS
     Route: 042
     Dates: start: 20181116, end: 20181116
  5. INFLIXIMAB (UNKNOWN) [Suspect]
     Active Substance: INFLIXIMAB
     Dosage: 400 MG, Q4WEEKS
     Route: 042
     Dates: start: 20181220, end: 20181220
  6. INFLIXIMAB (UNKNOWN) [Suspect]
     Active Substance: INFLIXIMAB
     Dosage: 400 MG, Q4WEEKS
     Route: 042
     Dates: start: 20181220, end: 20181220
  7. STESOLID [Concomitant]
     Active Substance: DIAZEPAM
     Dosage: AS NECESSARY
  8. INFLIXIMAB (UNKNOWN) [Suspect]
     Active Substance: INFLIXIMAB
     Indication: CROHN^S DISEASE
     Dosage: UNK
     Route: 042
     Dates: start: 20181115
  9. INFLIXIMAB (UNKNOWN) [Suspect]
     Active Substance: INFLIXIMAB
     Dosage: UNK
     Route: 042
     Dates: start: 20181115
  10. INFLIXIMAB (UNKNOWN) [Suspect]
     Active Substance: INFLIXIMAB
     Dosage: UNK
     Route: 042
     Dates: start: 20181115
  11. INFLIXIMAB (UNKNOWN) [Suspect]
     Active Substance: INFLIXIMAB
     Dosage: UNK
     Route: 042
     Dates: start: 20181115
  12. INFLIXIMAB (UNKNOWN) [Suspect]
     Active Substance: INFLIXIMAB
     Dosage: 400 MG, Q4WEEKS
     Route: 042
     Dates: start: 20181116, end: 20181116
  13. INFLIXIMAB (UNKNOWN) [Suspect]
     Active Substance: INFLIXIMAB
     Dosage: 400 MG, Q4WEEKS
     Route: 042
     Dates: start: 20181220, end: 20181220
  14. INFLIXIMAB (UNKNOWN) [Suspect]
     Active Substance: INFLIXIMAB
     Dosage: 400 MG, Q4WEEKS
     Route: 042
     Dates: start: 20181116, end: 20181116
  15. INFLIXIMAB (UNKNOWN) [Suspect]
     Active Substance: INFLIXIMAB
     Dosage: 400 MG, Q4WEEKS
     Route: 042
     Dates: start: 20181220, end: 20181220
  16. LERGIGAN [Concomitant]
     Dosage: AS NECESSARY
  17. INFLIXIMAB (UNKNOWN) [Suspect]
     Active Substance: INFLIXIMAB
     Dosage: 400 MG, Q4WEEKS
     Route: 042
     Dates: start: 20181220, end: 20181220
  18. INFLIXIMAB (UNKNOWN) [Suspect]
     Active Substance: INFLIXIMAB
     Dosage: 400 MG, Q4WEEKS
     Route: 042
     Dates: start: 20181116, end: 20181116
  19. OMEPRAZOLE. [Concomitant]
     Active Substance: OMEPRAZOLE
     Dosage: 20 MG, QD
  20. AZATHIOPRINE. [Concomitant]
     Active Substance: AZATHIOPRINE
     Indication: CROHN^S DISEASE
     Dosage: UNK

REACTIONS (3)
  - Sinus tachycardia [Unknown]
  - Supraventricular tachycardia [Unknown]
  - Product use issue [Unknown]

NARRATIVE: CASE EVENT DATE: 20181019
